FAERS Safety Report 9033593 (Version 2)
Quarter: 2013Q1

REPORT INFORMATION
  Report Type: Spontaneous
  Country: SE (occurrence: SE)
  Receive Date: 20130128
  Receipt Date: 20130305
  Transmission Date: 20140127
  Serious: No
  Sender: FDA-Public Use
  Company Number: SE-ELI_LILLY_AND_COMPANY-SE201301006526

PATIENT
  Age: 4 Year
  Sex: Female

DRUGS (2)
  1. STRATTERA [Suspect]
     Dosage: 18 MG, QD
     Route: 048
     Dates: start: 20111124, end: 20120218
  2. THERALEN [Concomitant]

REACTIONS (3)
  - Dysarthria [Unknown]
  - Tic [Unknown]
  - Aggression [Unknown]
